FAERS Safety Report 20771195 (Version 1)
Quarter: 2022Q2

REPORT INFORMATION
  Report Type: Spontaneous
  Country: US (occurrence: US)
  Receive Date: 20220429
  Receipt Date: 20220429
  Transmission Date: 20220720
  Serious: No
  Sender: FDA-Public Use
  Company Number: US-PFIZER INC-2018406171

PATIENT
  Age: 83 Year
  Sex: Female

DRUGS (2)
  1. LYRICA [Suspect]
     Active Substance: PREGABALIN
     Indication: Back pain
     Dosage: 75 MG, 4X/DAY (1 CAPSULE FOUR TIMES A DAY)
     Route: 048
  2. LYRICA [Suspect]
     Active Substance: PREGABALIN
     Indication: Neuralgia

REACTIONS (2)
  - Product dose omission issue [Unknown]
  - Hypoacusis [Unknown]
